FAERS Safety Report 16483090 (Version 1)
Quarter: 2019Q2

REPORT INFORMATION
  Report Type: Spontaneous
  Country: US (occurrence: US)
  Receive Date: 20190515
  Receipt Date: 20190515
  Transmission Date: 20190711
  Serious: Yes (Death)
  Sender: FDA-Public Use
  Company Number: None

PATIENT
  Age: 35 Year
  Sex: Female
  Weight: 90.72 kg

DRUGS (5)
  1. HORMONE REPLACEMENTS [Concomitant]
  2. PROLIA [Suspect]
     Active Substance: DENOSUMAB
     Dosage: ?          QUANTITY:MOTS-AND;?
  3. HYDROCORTISONE. [Concomitant]
     Active Substance: HYDROCORTISONE
  4. KEPPRA [Concomitant]
     Active Substance: LEVETIRACETAM
  5. THYROID LEVOTHYROXINE [Concomitant]

REACTIONS (1)
  - Cerebrovascular accident [None]

NARRATIVE: CASE EVENT DATE: 20151210
